FAERS Safety Report 24593381 (Version 1)
Quarter: 2024Q4

REPORT INFORMATION
  Report Type: Spontaneous
  Country: US (occurrence: None)
  Receive Date: 20241107
  Receipt Date: 20241107
  Transmission Date: 20250114
  Serious: No
  Sender: Public
  Company Number: None

PATIENT
  Age: 76 Year
  Sex: Female
  Weight: 88.45 kg

DRUGS (1)
  1. TERIPARATIDE [Suspect]
     Active Substance: TERIPARATIDE
     Indication: Osteoporosis
     Dosage: OTHER STRENGTH : 600 MCG/2.4ML;?FREQUENCY : DAILY;?
     Route: 048
     Dates: start: 202312

REACTIONS (1)
  - COVID-19 [None]
